FAERS Safety Report 4349191-1 (Version None)
Quarter: 2004Q2

REPORT INFORMATION
  Report Type: 
  Country: None (occurrence: None)
  Receive Date: 20040427
  Receipt Date: 20030911
  Transmission Date: 20050107
  Serious: Yes (Other)
  Sender: FDA-Public Use
  Company Number: 000642

PATIENT
  Sex: Female

DRUGS (3)
  1. ZEVALIN [Suspect]
     Indication: NON-HODGKIN'S LYMPHOMA
     Dosage: 250 MG/M2, SINGLE RITUXAN DOSE 1, INTRAVENOUS; SEE IMAGE
     Route: 042
     Dates: start: 20030717, end: 20030717
  2. ZEVALIN [Suspect]
     Indication: NON-HODGKIN'S LYMPHOMA
     Dosage: 250 MG/M2, SINGLE RITUXAN DOSE 1, INTRAVENOUS; SEE IMAGE
     Route: 042
     Dates: start: 20030724, end: 20030724
  3. ZEVALIN [Suspect]
     Indication: NON-HODGKIN'S LYMPHOMA
     Dosage: 250 MG/M2, SINGLE RITUXAN DOSE 1, INTRAVENOUS; SEE IMAGE
     Route: 042
     Dates: start: 20030724, end: 20030724

REACTIONS (2)
  - EPISTAXIS [None]
  - THROMBOCYTOPENIA [None]
